FAERS Safety Report 4774040-7 (Version None)
Quarter: 2005Q3

REPORT INFORMATION
  Report Type: 
  Country: None (occurrence: None)
  Receive Date: 20050920
  Receipt Date: 19840528
  Transmission Date: 20060218
  Serious: Yes (Death)
  Sender: FDA-Public Use
  Company Number: JP-ABBOTT-05P-087-0307094-00

PATIENT
  Age: 71 Year
  Sex: Female
  Weight: 42 kg

DRUGS (3)
  1. ERYTHROCIN INJECTION [Suspect]
     Indication: LEGIONELLA INFECTION
     Route: 050
     Dates: start: 19820823, end: 19820829
  2. ERYTHROCIN INJECTION [Suspect]
     Dates: start: 19820903
  3. MITOMYCIN NUTRITION/STOMACH AND BOWEL MEDICATION [Concomitant]
     Indication: LUNG NEOPLASM MALIGNANT
     Dates: start: 19820817, end: 19820904

REACTIONS (1)
  - CARDIAC ARREST [None]
